FAERS Safety Report 10215150 (Version 2)
Quarter: 2014Q2

REPORT INFORMATION
  Report Type: Spontaneous
  Country: US (occurrence: US)
  Receive Date: 20140603
  Receipt Date: 20140603
  Transmission Date: 20141212
  Serious: Yes (Other)
  Sender: FDA-Public Use
  Company Number: PHHY2014US027339

PATIENT
  Sex: Male

DRUGS (15)
  1. BACLOFEN INTRATHECAL [Suspect]
     Indication: PAIN
     Dosage: 520 UG, PER DAY
     Route: 037
  2. HYDROCHLOROTHIAZIDE [Suspect]
     Dosage: UNK UKN, UNK
  3. LISINOPRIL [Suspect]
     Dosage: UNK UKN, UNK
  4. TESTOSTERONE [Suspect]
     Dosage: UNK UKN, UNK
  5. FENTANYL [Suspect]
     Dosage: 400 UG, PER DAY
     Route: 037
  6. FENTANYL [Suspect]
     Dosage: UNK UKN, UNK
  7. DILAUDID [Suspect]
     Dosage: 4 MG, PER DAY
     Route: 037
  8. DILAUDID [Suspect]
     Dosage: VIA AN ALTERNATE ROUTE
  9. CLONIDINE [Suspect]
     Dosage: 560 UG, PER DAY
     Route: 037
  10. ZOFRAN [Suspect]
     Dosage: UNK UKN, UNK
  11. PAXIL//PAROXETINE HYDROCHLORIDE [Suspect]
     Dosage: UNK UKN, UNK
  12. ESGIC [Suspect]
     Dosage: UNK UKN, UNK
  13. WELLBUTRIN [Suspect]
     Dosage: UNK UKN, UNK
  14. LASIX [Suspect]
     Dosage: UNK UKN, UNK
  15. AMBIEN [Suspect]
     Dosage: UNK UKN, UNK

REACTIONS (9)
  - Hypokalaemia [Unknown]
  - Balance disorder [Unknown]
  - Influenza [Unknown]
  - Therapeutic response changed [Unknown]
  - Malaise [Unknown]
  - Nausea [Unknown]
  - Pain [Unknown]
  - No therapeutic response [Unknown]
  - Drug withdrawal syndrome [Unknown]
